FAERS Safety Report 9718965 (Version 1)
Quarter: 2013Q4

REPORT INFORMATION
  Report Type: Spontaneous
  Country: US (occurrence: None)
  Receive Date: 20131125
  Receipt Date: 20131125
  Transmission Date: 20140711
  Serious: Yes (Hospitalization)
  Sender: FDA-Public Use
  Company Number: SYM-2013-13014

PATIENT
  Age: 48 Year
  Sex: Female

DRUGS (6)
  1. WELLBUTRIN (BUPROPION HYDROCHLORIDE) (BUPROPION HYDROCHLORIDE) [Suspect]
     Indication: NERVOUS SYSTEM DISORDER
  2. LYRICA [Suspect]
     Indication: PAIN IN EXTREMITY
     Dosage: 300 MG
     Dates: start: 2008
  3. LASIX (FUROSEMIDE) (FUROSEMIDE) [Concomitant]
  4. POTASSIUM (POTASSIUM) [Concomitant]
  5. COREG (CARVEDILOL) [Concomitant]
  6. VITAMINS [Concomitant]

REACTIONS (8)
  - Dehydration [None]
  - Nervousness [None]
  - Off label use [None]
  - Loss of consciousness [None]
  - Road traffic accident [None]
  - Nervous system disorder [None]
  - Body temperature increased [None]
  - Cardiac disorder [None]
